FAERS Safety Report 22166757 (Version 3)
Quarter: 2023Q2

REPORT INFORMATION
  Report Type: Spontaneous
  Country: US (occurrence: US)
  Receive Date: 20230403
  Receipt Date: 20230509
  Transmission Date: 20230721
  Serious: Yes (Other)
  Sender: FDA-Public Use
  Company Number: US-PFIZER INC-202300139664

PATIENT
  Age: 54 Year
  Sex: Male

DRUGS (2)
  1. MEKTOVI [Suspect]
     Active Substance: BINIMETINIB
     Indication: Malignant melanoma
     Dosage: 15 MG
  2. BRAFTOVI [Suspect]
     Active Substance: ENCORAFENIB
     Indication: Malignant melanoma
     Dosage: 75 MG

REACTIONS (5)
  - Spinal compression fracture [Unknown]
  - Spinal operation [Unknown]
  - Neoplasm progression [Unknown]
  - Lymphadenopathy [Unknown]
  - Musculoskeletal discomfort [Unknown]
